FAERS Safety Report 24851313 (Version 1)
Quarter: 2025Q1

REPORT INFORMATION
  Report Type: Spontaneous
  Country: US (occurrence: US)
  Receive Date: 20250116
  Receipt Date: 20250116
  Transmission Date: 20250408
  Serious: Yes (Other)
  Sender: NOVO NORDISK
  Company Number: US-NOVOPROD-1041182

PATIENT
  Age: 68 Year
  Sex: Female

DRUGS (1)
  1. OZEMPIC [Suspect]
     Active Substance: SEMAGLUTIDE
     Indication: Diabetes mellitus
     Dosage: 1 MG, QW
     Route: 058

REACTIONS (2)
  - Cataract [Unknown]
  - Off label use [Not Recovered/Not Resolved]

NARRATIVE: CASE EVENT DATE: 20221101
